FAERS Safety Report 22165145 (Version 1)
Quarter: 2023Q2

REPORT INFORMATION
  Report Type: Spontaneous
  Country: CN (occurrence: None)
  Receive Date: 20230403
  Receipt Date: 20230403
  Transmission Date: 20230722
  Serious: Yes (Other)
  Sender: FDA-Public Use
  Company Number: CN-ROCHE-3319531

PATIENT

DRUGS (10)
  1. MABTHERA [Suspect]
     Active Substance: RITUXIMAB
     Indication: Diffuse large B-cell lymphoma
     Dosage: R-CDOP: 16/APR/2021, 08/MAY/2021, 01/JUN/2021, 26/JUN/2021, 20/JUL/2021
     Route: 065
     Dates: start: 20210416
  2. MABTHERA [Suspect]
     Active Substance: RITUXIMAB
     Dosage: R-DHAP
     Route: 065
     Dates: start: 20210821
  3. CYCLOPHOSPHAMIDE [Concomitant]
     Active Substance: CYCLOPHOSPHAMIDE
     Indication: Diffuse large B-cell lymphoma
     Dosage: R-CDOP: 16/APR/2021, 08/MAY/2021, 01/JUN/2021, 26/JUN/2021, 20/JUL/2021
  4. VINCRISTINE [Concomitant]
     Active Substance: VINCRISTINE
     Indication: Diffuse large B-cell lymphoma
     Dosage: R-CDOP: 16/APR/2021, 08/MAY/2021, 01/JUN/2021, 26/JUN/2021, 20/JUL/2021
     Dates: start: 20210416
  5. DOXORUBICIN HYDROCHLORIDE [Concomitant]
     Active Substance: DOXORUBICIN HYDROCHLORIDE
     Indication: Diffuse large B-cell lymphoma
     Dosage: R-CDOP: 16/APR/2021, 08/MAY/2021, 01/JUN/2021, 26/JUN/2021, 20/JUL/2021
  6. PREDNISONE [Concomitant]
     Active Substance: PREDNISONE
     Indication: Diffuse large B-cell lymphoma
     Dosage: R-CDOP: 16/APR/2021, 08/MAY/2021, 01/JUN/2021, 26/JUN/2021, 20/JUL/2021
  7. CISPLATIN [Concomitant]
     Active Substance: CISPLATIN
     Indication: Diffuse large B-cell lymphoma
     Dosage: R-DHAP
     Dates: start: 20210821
  8. CYTARABINE [Concomitant]
     Active Substance: CYTARABINE
     Indication: Diffuse large B-cell lymphoma
     Dosage: R-DHAP
     Dates: start: 20210821
  9. DEXAMETHASONE [Concomitant]
     Active Substance: DEXAMETHASONE
     Indication: Diffuse large B-cell lymphoma
     Dosage: R-DHAP
     Dates: start: 20210821
  10. LENALIDOMIDE [Concomitant]
     Active Substance: LENALIDOMIDE
     Indication: Diffuse large B-cell lymphoma
     Dates: start: 20211128

REACTIONS (2)
  - Cytokine release syndrome [Unknown]
  - Myelosuppression [Unknown]
